FAERS Safety Report 8997112 (Version 1)
Quarter: 2013Q1

REPORT INFORMATION
  Report Type: Spontaneous
  Country: US (occurrence: US)
  Receive Date: 20130104
  Receipt Date: 20130104
  Transmission Date: 20140127
  Serious: Yes (Hospitalization, Other)
  Sender: FDA-Public Use
  Company Number: PHEH2011US06915

PATIENT
  Age: 57 Year
  Sex: Male
  Weight: 64.13 kg

DRUGS (10)
  1. SANDOSTATIN LAR DEPOT [Suspect]
     Indication: NEUROENDOCRINE TUMOUR
     Dosage: 30 MG, EVERY 4 WEEKS
     Route: 030
     Dates: start: 20110131
  2. AFINITOR [Suspect]
     Indication: CARCINOID TUMOUR
     Dosage: 10 MG, QD
     Route: 048
     Dates: start: 20110914, end: 20121014
  3. REMERON [Concomitant]
     Dosage: 0.5 MG, QHS
     Route: 048
     Dates: start: 20111102
  4. PANTOPRAZOLE [Concomitant]
     Dosage: 40 MG, QD
     Route: 048
     Dates: start: 20111019
  5. METOPROLOL TARTRATE [Concomitant]
     Dosage: 25 MG, QD
     Route: 048
  6. LORAZEPAM [Concomitant]
     Dosage: 15 MG, BID
     Route: 048
     Dates: start: 20111019
  7. COLACE [Concomitant]
     Dosage: 100 MG, QD
     Route: 048
  8. BENAZEPRIL HYDROCHLORIDE [Concomitant]
     Dosage: 1/2 TABLET QD
  9. BABY ASPIRIN [Concomitant]
     Dosage: 325 MG, QD
  10. LIPTOR [Concomitant]
     Dosage: 325 MG, QD
     Route: 048

REACTIONS (4)
  - Intestinal obstruction [Recovered/Resolved]
  - Malignant neoplasm progression [Not Recovered/Not Resolved]
  - Abdominal pain [Unknown]
  - Drug hypersensitivity [Unknown]
